FAERS Safety Report 4404392-9 (Version None)
Quarter: 2004Q3

REPORT INFORMATION
  Report Type: 
  Country: None (occurrence: None)
  Receive Date: 20040719
  Receipt Date: 20040706
  Transmission Date: 20050211
  Serious: Yes (Hospitalization)
  Sender: FDA-Public Use
  Company Number: 2004045756

PATIENT
  Age: 57 Year
  Sex: Female

DRUGS (5)
  1. ATORVASTATIN CALCIUM [Suspect]
     Indication: HYPERLIPIDAEMIA
     Dosage: 20 MG (20 MG, 1 D), ORAL
     Route: 048
     Dates: start: 20040421, end: 20040512
  2. POTASSIUM CHLORIDE [Suspect]
     Indication: ILL-DEFINED DISORDER
     Dosage: 1 DOSE FORM (1 IN 1 D), ORAL
     Route: 048
     Dates: start: 20040421
  3. OFLOXACIN [Suspect]
     Indication: URINARY TRACT INFECTION
     Dosage: 400 MG (400 MG, 1 IN 1 D), ORAL
     Route: 048
     Dates: start: 20040423, end: 20040503
  4. ENOXAPARIN SODIUM [Suspect]
     Indication: ISCHAEMIC STROKE
     Dosage: 0.4 MG (0.4 ML, 1 IN 1
     Dates: start: 20040421
  5. ACETYLSALICYLIC ACID SRT [Suspect]
     Indication: ISCHAEMIC STROKE
     Dosage: 160 MG (160 MG, 1 IN 1 D), ORAL
     Route: 048
     Dates: start: 20040421

REACTIONS (4)
  - CYTOLYTIC HEPATITIS [None]
  - ISCHAEMIC STROKE [None]
  - URINARY INCONTINENCE [None]
  - URINARY TRACT INFECTION [None]
